FAERS Safety Report 9653305 (Version 1)
Quarter: 2013Q4

REPORT INFORMATION
  Report Type: Spontaneous
  Country: US (occurrence: US)
  Receive Date: 20131029
  Receipt Date: 20131029
  Transmission Date: 20140711
  Serious: Yes (Hospitalization)
  Sender: FDA-Public Use
  Company Number: US-BAXTER-2013BAX041755

PATIENT
  Age: 24 Year
  Sex: Female

DRUGS (3)
  1. DIANEAL LOW CALCIUM [Suspect]
     Indication: PERITONEAL DIALYSIS
     Route: 033
     Dates: start: 20120821
  2. DIANEAL LOW CALCIUM [Suspect]
     Route: 033
     Dates: start: 20120821
  3. DIANEAL LOW CALCIUM [Suspect]
     Route: 033
     Dates: start: 20120821

REACTIONS (4)
  - Chest pain [Recovered/Resolved]
  - Vaginal infection [Recovering/Resolving]
  - Headache [Recovering/Resolving]
  - Muscle spasms [Recovering/Resolving]
